FAERS Safety Report 22067017 (Version 1)
Quarter: 2023Q1

REPORT INFORMATION
  Report Type: Spontaneous
  Country: US (occurrence: US)
  Receive Date: 20230306
  Receipt Date: 20230306
  Transmission Date: 20230418
  Serious: No
  Sender: FDA-Public Use
  Company Number: US-PLXPHARMA-2022-PLX-00057

PATIENT

DRUGS (3)
  1. VAZALORE [Suspect]
     Active Substance: ASPIRIN
     Indication: Pyrexia
     Dosage: 81 MILLIGRAM
     Route: 048
     Dates: start: 20220602, end: 20220608
  2. VAZALORE [Suspect]
     Active Substance: ASPIRIN
     Indication: Headache
     Route: 048
  3. VAZALORE [Suspect]
     Active Substance: ASPIRIN
     Indication: Myalgia

REACTIONS (1)
  - Drug ineffective [Unknown]

NARRATIVE: CASE EVENT DATE: 20220602
